FAERS Safety Report 8237088-6 (Version None)
Quarter: 2012Q1

REPORT INFORMATION
  Report Type: 
  Country: None (occurrence: None)
  Receive Date: 20120327
  Receipt Date: 20120320
  Transmission Date: 20120608
  Serious: Yes (Hospitalization)
  Sender: FDA-Public Use
  Company Number: AU-EISAI INC-E3810-05151-SPO-AU

PATIENT
  Sex: Female
  Weight: 54 kg

DRUGS (1)
  1. RABEPRAZOLE SODIUM [Suspect]
     Indication: NODULE
     Route: 048
     Dates: start: 20110601, end: 20111101

REACTIONS (1)
  - RENAL IMPAIRMENT [None]
